FAERS Safety Report 17796231 (Version 1)
Quarter: 2020Q2

REPORT INFORMATION
  Report Type: Report from Study
  Country: NL (occurrence: NL)
  Receive Date: 20200517
  Receipt Date: 20200517
  Transmission Date: 20200714
  Serious: Yes (Death)
  Sender: FDA-Public Use
  Company Number: NVSC2020NL006937

PATIENT
  Age: 70 Year
  Sex: Female

DRUGS (4)
  1. SODIUM CHLORIDE. [Concomitant]
     Active Substance: SODIUM CHLORIDE
     Indication: PRODUCT USED FOR UNKNOWN INDICATION
     Dosage: 0.9 % (100 ML BAG)
     Route: 065
  2. ZOMETA [Suspect]
     Active Substance: ZOLEDRONIC ACID
     Dosage: ONCE EVERY 12 WEEKS
     Route: 042
     Dates: start: 20191010
  3. ZOMETA [Suspect]
     Active Substance: ZOLEDRONIC ACID
     Indication: BREAST CANCER METASTATIC
     Dosage: UNK
     Route: 042
     Dates: start: 20170327
  4. ZOMETA [Suspect]
     Active Substance: ZOLEDRONIC ACID
     Dosage: ONCE EVERY 12 WEEKS
     Route: 042
     Dates: start: 20200122

REACTIONS (4)
  - Off label use [Unknown]
  - Diarrhoea [Unknown]
  - Death [Fatal]
  - Malaise [Unknown]

NARRATIVE: CASE EVENT DATE: 20200109
